FAERS Safety Report 19180778 (Version 2)
Quarter: 2021Q2

REPORT INFORMATION
  Report Type: Spontaneous
  Country: FR (occurrence: FR)
  Receive Date: 20210426
  Receipt Date: 20210507
  Transmission Date: 20210717
  Serious: Yes (Life-Threatening, Hospitalization, Other)
  Sender: FDA-Public Use
  Company Number: FR-MYLANLABS-2021M1024173

PATIENT
  Age: 44 Year
  Sex: Female

DRUGS (4)
  1. LOXAPAC                            /00401801/ [Suspect]
     Active Substance: LOXAPINE
     Indication: PRODUCT USED FOR UNKNOWN INDICATION
     Dosage: UNK UNK, QD
  2. SERESTA [Suspect]
     Active Substance: OXAZEPAM
     Indication: PRODUCT USED FOR UNKNOWN INDICATION
     Dosage: UNK
  3. SERTRALINE [Suspect]
     Active Substance: SERTRALINE HYDROCHLORIDE
     Indication: PRODUCT USED FOR UNKNOWN INDICATION
     Dosage: UNK, AM (IN THE MORNING)
  4. MYLAN QUETIAPINE 300 [Suspect]
     Active Substance: QUETIAPINE
     Indication: DEPRESSION
     Dosage: 300 MILLIGRAM, QD (LAST 3?4 MONTHS (FIRS USE)

REACTIONS (10)
  - Suicidal behaviour [Unknown]
  - Increased appetite [Unknown]
  - Headache [Unknown]
  - Dementia [Unknown]
  - Homicidal ideation [Unknown]
  - Hallucination, auditory [Unknown]
  - Constipation [Unknown]
  - Soliloquy [Unknown]
  - Vision blurred [Unknown]
  - Weight increased [Unknown]
